FAERS Safety Report 11800387 (Version 1)
Quarter: 2015Q4

REPORT INFORMATION
  Report Type: Report from Study
  Country: IT (occurrence: IT)
  Receive Date: 20151203
  Receipt Date: 20151203
  Transmission Date: 20160305
  Serious: Yes (Other)
  Sender: FDA-Public Use
  Company Number: IT-BAXTER-2015BAX065691

PATIENT
  Sex: Female

DRUGS (2)
  1. EPIRUBICIN [Suspect]
     Active Substance: EPIRUBICIN
     Indication: BREAST CANCER
     Dosage: ON DAY 1 EACH CYCLE
     Route: 042
  2. ENDOXAN BAXTER [Suspect]
     Active Substance: CYCLOPHOSPHAMIDE
     Indication: BREAST CANCER
     Dosage: ON DAY 1 EACH CYCLE
     Route: 042

REACTIONS (2)
  - Disease recurrence [Unknown]
  - Alopecia [Unknown]
